FAERS Safety Report 17915266 (Version 1)
Quarter: 2020Q2

REPORT INFORMATION
  Report Type: Spontaneous
  Country: US (occurrence: US)
  Receive Date: 20200619
  Receipt Date: 20200619
  Transmission Date: 20200714
  Serious: No
  Sender: FDA-Public Use
  Company Number: US-ITALFARMACO SPA-2086107

PATIENT
  Age: 72 Year
  Sex: Male

DRUGS (4)
  1. CARVEDILOL. [Concomitant]
     Active Substance: CARVEDILOL
  2. TYLENOL [Concomitant]
     Active Substance: ACETAMINOPHEN
  3. GUAIFENESIN. [Concomitant]
     Active Substance: GUAIFENESIN
  4. TIGLUTIK [Suspect]
     Active Substance: RILUZOLE
     Indication: AMYOTROPHIC LATERAL SCLEROSIS
     Dates: start: 20200409, end: 20200501

REACTIONS (1)
  - Dyspnoea [Not Recovered/Not Resolved]
